FAERS Safety Report 4652543-3 (Version None)
Quarter: 2005Q2

REPORT INFORMATION
  Report Type: 
  Country: None (occurrence: None)
  Receive Date: 20050502
  Receipt Date: 20050415
  Transmission Date: 20051028
  Serious: Yes (Other)
  Sender: FDA-Public Use
  Company Number: ES-2005-005913

PATIENT
  Age: 29 Year
  Sex: Female

DRUGS (1)
  1. YASMIN [Suspect]
     Dosage: TAB (S), ORAL
     Route: 048

REACTIONS (1)
  - INTRACRANIAL PRESSURE INCREASED [None]
